FAERS Safety Report 4724442-X (Version None)
Quarter: 2005Q3

REPORT INFORMATION
  Report Type: 
  Country: None (occurrence: None)
  Receive Date: 20050721
  Receipt Date: 20050624
  Transmission Date: 20060218
  Serious: Yes (Life-Threatening)
  Sender: FDA-Public Use
  Company Number: 2005102439

PATIENT
  Age: 78 Year
  Sex: Female

DRUGS (8)
  1. ALDACTONE [Suspect]
     Indication: HYPERTENSION
     Dosage: 25 MG (DAILY), ORAL
     Route: 048
     Dates: end: 20050613
  2. OLMETEC (OLMESARTAN) [Suspect]
     Indication: HYPERTENSION
     Dosage: 20 MG (DAILY), ORAL
     Route: 048
     Dates: end: 20050613
  3. ACETYLSALICYLIC ACID SRT [Concomitant]
  4. LASIX [Concomitant]
  5. GLIMEPIRIDE [Concomitant]
  6. PRAVASTATIN [Concomitant]
  7. DIGOXIN [Concomitant]
  8. TROXIPIDE (TROXIPIDE) [Concomitant]

REACTIONS (3)
  - BRADYCARDIA [None]
  - DEPRESSED LEVEL OF CONSCIOUSNESS [None]
  - HYPERKALAEMIA [None]
